FAERS Safety Report 8683951 (Version 2)
Quarter: 2012Q4

REPORT INFORMATION
  Report Type: 
  Country: US (occurrence: US)
  Receive Date: 20120726
  Receipt Date: 20121130
  Transmission Date: 20130627
  Serious: No
  Sender: FDA-Public Use
  Company Number: US-ASTRAZENECA-2011SE45102

PATIENT
  Age: 48 Year
  Sex: Female
  Weight: 104.3 kg

DRUGS (17)
  1. SEROQUEL [Suspect]
     Indication: ANXIETY
     Route: 048
     Dates: start: 2009
  2. SEROQUEL [Suspect]
     Indication: DEPRESSION
     Route: 048
     Dates: start: 2009
  3. SEROQUEL [Suspect]
     Indication: ANXIETY
     Route: 048
     Dates: start: 2009, end: 201106
  4. SEROQUEL [Suspect]
     Indication: DEPRESSION
     Route: 048
     Dates: start: 2009, end: 201106
  5. SEROQUEL [Suspect]
     Indication: ANXIETY
     Route: 048
     Dates: start: 201106
  6. SEROQUEL [Suspect]
     Indication: DEPRESSION
     Route: 048
     Dates: start: 201106
  7. SEROQUEL [Suspect]
     Indication: ANXIETY
     Route: 048
  8. SEROQUEL [Suspect]
     Indication: DEPRESSION
     Route: 048
  9. SEROQUEL [Suspect]
     Indication: ANXIETY
     Dosage: TAKING ONE INSTEAD OF TWO
     Route: 048
  10. SEROQUEL [Suspect]
     Indication: DEPRESSION
     Dosage: TAKING ONE INSTEAD OF TWO
     Route: 048
  11. KLONOPIN [Concomitant]
     Indication: ANXIETY
     Route: 048
  12. CYMBALTA [Concomitant]
     Indication: ANXIETY
     Route: 048
     Dates: start: 2009
  13. CYMBALTA [Concomitant]
     Indication: DEPRESSION
     Route: 048
     Dates: start: 2009
  14. CYMBALTA [Concomitant]
     Indication: FIBROMYALGIA
     Route: 048
     Dates: start: 2009
  15. CYMBALTA [Concomitant]
     Indication: ARTHRITIS
     Route: 048
     Dates: start: 2009
  16. SAVELLA [Concomitant]
  17. IBUPROFEN [Concomitant]
     Indication: ARTHRITIS
     Route: 048
     Dates: start: 201109

REACTIONS (10)
  - Sleep disorder due to a general medical condition [Unknown]
  - Fibromyalgia [Not Recovered/Not Resolved]
  - Mood swings [Not Recovered/Not Resolved]
  - Depression [Not Recovered/Not Resolved]
  - Weight decreased [Unknown]
  - Exercise tolerance decreased [Not Recovered/Not Resolved]
  - Hypersensitivity [Unknown]
  - Drug effect incomplete [Unknown]
  - Drug dispensing error [Not Recovered/Not Resolved]
  - Intentional drug misuse [Unknown]
